FAERS Safety Report 7398253-3 (Version None)
Quarter: 2011Q2

REPORT INFORMATION
  Report Type: 
  Country: None (occurrence: None)
  Receive Date: 20110406
  Receipt Date: 20110325
  Transmission Date: 20111010
  Serious: Yes (Hospitalization)
  Sender: FDA-Public Use
  Company Number: GB-WATSON-2011-04749

PATIENT
  Age: 39 Year
  Sex: Female

DRUGS (1)
  1. CIPROFLOXACIN HCL [Suspect]
     Indication: PROPHYLAXIS
     Dosage: 500 MG, UNK
     Route: 048
     Dates: start: 20110311, end: 20110311

REACTIONS (7)
  - PHARYNGEAL OEDEMA [None]
  - RENAL PAIN [None]
  - MALAISE [None]
  - FLUSHING [None]
  - DYSPHONIA [None]
  - RASH MACULAR [None]
  - DIZZINESS [None]
